FAERS Safety Report 9492729 (Version 10)
Quarter: 2015Q2

REPORT INFORMATION
  Report Type: Report from Study
  Country: FR (occurrence: FR)
  Receive Date: 20130830
  Receipt Date: 20150429
  Transmission Date: 20150821
  Serious: Yes (Hospitalization, Disabling)
  Sender: FDA-Public Use
  Company Number: FR-ROCHE-1265801

PATIENT
  Age: 82 Year
  Sex: Female
  Weight: 61.6 kg

DRUGS (26)
  1. LYSANXIA [Concomitant]
     Active Substance: PRAZEPAM
     Indication: BIPOLAR I DISORDER
     Route: 065
  2. TEGRETOL LP [Concomitant]
     Active Substance: CARBAMAZEPINE
     Indication: BIPOLAR I DISORDER
     Route: 065
  3. SPAGULAX [Concomitant]
     Active Substance: PLANTAGO OVATA SEED
     Indication: CONSTIPATION
     Route: 065
     Dates: end: 20130306
  4. DIFFU K [Concomitant]
     Active Substance: POTASSIUM CHLORIDE
     Indication: RENAL FAILURE
     Route: 065
     Dates: start: 20130503, end: 20130529
  5. OFLOCET [Concomitant]
     Active Substance: OFLOXACIN
     Indication: URINARY TRACT INFECTION
     Route: 065
     Dates: start: 20130503, end: 20130508
  6. SPASFON (FRANCE) [Concomitant]
     Active Substance: PHLOROGLUCINOL
     Route: 065
     Dates: start: 20121211, end: 20130307
  7. BACTRIM [Concomitant]
     Active Substance: SULFAMETHOXAZOLE\TRIMETHOPRIM
     Indication: URINARY TRACT INFECTION
     Route: 065
     Dates: start: 20130205, end: 20130210
  8. DIFFU K [Concomitant]
     Active Substance: POTASSIUM CHLORIDE
     Route: 065
     Dates: start: 20130725
  9. GLUCOSE 5% [Concomitant]
     Active Substance: DEXTROSE
     Indication: HYPOKALAEMIA
     Route: 065
     Dates: start: 20130724, end: 20130724
  10. CYAMEMAZINE [Concomitant]
     Active Substance: CYAMEMAZINE
     Indication: BIPOLAR I DISORDER
  11. IXEL [Concomitant]
     Active Substance: MILNACIPRAN HYDROCHLORIDE
     Indication: BIPOLAR I DISORDER
     Route: 065
  12. LOXEN LP [Concomitant]
     Active Substance: NICARDIPINE
     Indication: HYPERTENSION
     Route: 065
     Dates: start: 20130530
  13. TARDYFERON (FRANCE) [Concomitant]
     Indication: ANAEMIA
     Route: 065
     Dates: start: 20130627, end: 20130723
  14. ALDACTONE [Suspect]
     Active Substance: SPIRONOLACTONE
     Indication: HYPERTENSION
     Route: 065
     Dates: end: 20130819
  15. MYCOSTER CREME [Concomitant]
     Indication: INTERTRIGO
     Dosage: TOTAL DAILY DOSE: 2 APPLICATIONS.
     Route: 065
     Dates: start: 20130530, end: 20130627
  16. POTASSIUM CHLORIDE. [Concomitant]
     Active Substance: POTASSIUM CHLORIDE
     Indication: HYPOKALAEMIA
     Route: 065
     Dates: start: 20130724, end: 20130724
  17. TERCIAN [Concomitant]
     Active Substance: CYAMEMAZINE
     Indication: BIPOLAR I DISORDER
  18. LASILIX [Suspect]
     Active Substance: FUROSEMIDE
     Indication: HYPERTENSION
     Route: 065
     Dates: end: 20130819
  19. SERESTA [Concomitant]
     Active Substance: OXAZEPAM
     Route: 065
     Dates: start: 20130819
  20. DIFFU K [Concomitant]
     Active Substance: POTASSIUM CHLORIDE
     Indication: HYPOKALAEMIA
     Route: 065
     Dates: start: 20130307, end: 20130312
  21. DIFFU K [Concomitant]
     Active Substance: POTASSIUM CHLORIDE
     Route: 065
     Dates: start: 20130819
  22. TARDYFERON (FRANCE) [Concomitant]
     Indication: RENAL FAILURE
     Route: 065
     Dates: start: 20130820, end: 20130917
  23. SERESTA [Concomitant]
     Active Substance: OXAZEPAM
     Indication: BIPOLAR I DISORDER
     Route: 065
     Dates: end: 20130818
  24. CALCIPARINE [Concomitant]
     Active Substance: HEPARIN CALCIUM
     Route: 065
     Dates: start: 20130819, end: 20130821
  25. VISMODEGIB [Suspect]
     Active Substance: VISMODEGIB
     Indication: BASAL CELL CARCINOMA
     Dosage: THE LAST DOSE PRIOR TO THE EVENT WAS ON 18/AUG/2013.
     Route: 048
     Dates: start: 20121114, end: 20130820
  26. MILNACIPRAN [Concomitant]
     Active Substance: MILNACIPRAN
     Route: 065

REACTIONS (1)
  - Renal failure [Recovered/Resolved]

NARRATIVE: CASE EVENT DATE: 20130818
